FAERS Safety Report 25771333 (Version 1)
Quarter: 2025Q3

REPORT INFORMATION
  Report Type: Spontaneous
  Country: US (occurrence: US)
  Receive Date: 20250908
  Receipt Date: 20250908
  Transmission Date: 20251021
  Serious: No
  Sender: DOMPE FARMACEUTICI
  Company Number: US-FARMAPROD-202504-1194

PATIENT
  Sex: Female

DRUGS (25)
  1. OXERVATE [Suspect]
     Active Substance: CENEGERMIN-BKBJ
     Indication: Neurotrophic keratopathy
     Route: 047
     Dates: start: 20201026
  2. OXERVATE [Suspect]
     Active Substance: CENEGERMIN-BKBJ
     Route: 047
     Dates: start: 20250317
  3. REFRESH CELLUVISC [Concomitant]
     Active Substance: CARBOXYMETHYLCELLULOSE SODIUM
  4. PROMETHAZINE HYDROCHLORIDE [Concomitant]
     Active Substance: PROMETHAZINE HYDROCHLORIDE
  5. PROTONIX [Concomitant]
     Active Substance: PANTOPRAZOLE SODIUM
  6. ONDANSETRON HYDROCHLORIDE [Concomitant]
     Active Substance: ONDANSETRON HYDROCHLORIDE
  7. NITROGLYCERIN [Concomitant]
     Active Substance: NITROGLYCERIN
  8. NARCAN [Concomitant]
     Active Substance: NALOXONE HYDROCHLORIDE
  9. METOPROLOL SUCCINATE [Concomitant]
     Active Substance: METOPROLOL SUCCINATE
  10. METOCLOPRAMIDE HYDROCHLORIDE [Concomitant]
     Active Substance: METOCLOPRAMIDE HYDROCHLORIDE
  11. LACTULOSE [Concomitant]
     Active Substance: LACTULOSE
  12. HYDROCHLOROTHIAZIDE [Concomitant]
     Active Substance: HYDROCHLOROTHIAZIDE
  13. GABAPENTIN [Concomitant]
     Active Substance: GABAPENTIN
  14. ESZOPICLONE [Concomitant]
     Active Substance: ESZOPICLONE
  15. FAMOTIDINE [Concomitant]
     Active Substance: FAMOTIDINE
  16. ESTRADIOL [Concomitant]
     Active Substance: ESTRADIOL
  17. ERYTHROMYCIN [Concomitant]
     Active Substance: ERYTHROMYCIN
  18. ERGOCALCIFEROL [Concomitant]
     Active Substance: ERGOCALCIFEROL
  19. DIFLUPREDNATE [Concomitant]
     Active Substance: DIFLUPREDNATE
  20. VOLTAREN ARTHRITIS PAIN [Concomitant]
     Active Substance: DICLOFENAC SODIUM
  21. RESTASIS [Concomitant]
     Active Substance: CYCLOSPORINE
  22. COLESTIPOL HYDROCHLORIDE [Concomitant]
     Active Substance: COLESTIPOL HYDROCHLORIDE
  23. ATROPINE SULFATE [Concomitant]
     Active Substance: ATROPINE SULFATE
  24. ASPIRIN [Concomitant]
     Active Substance: ASPIRIN
  25. ACETAMINOPHEN [Concomitant]
     Active Substance: ACETAMINOPHEN

REACTIONS (1)
  - Eye pain [Unknown]
